FAERS Safety Report 9850533 (Version 1)
Quarter: 2013Q4

REPORT INFORMATION
  Report Type: Spontaneous
  Country: US (occurrence: None)
  Receive Date: 20131226
  Receipt Date: 20131226
  Transmission Date: 20140711
  Serious: Yes (Death)
  Sender: FDA-Public Use
  Company Number: PHEH2012US012468

PATIENT
  Age: 62 Year
  Sex: Male
  Weight: 93.9 kg

DRUGS (11)
  1. AFINITOR [Suspect]
     Route: 048
  2. JANUVIA [Concomitant]
  3. JANUVIA [Concomitant]
  4. FUROSEMIDE [Concomitant]
  5. LIPITOR [Concomitant]
  6. TRICOR [Concomitant]
  7. GLIPIZIDE [Concomitant]
  8. ACTOS [Concomitant]
  9. PHOSLO [Concomitant]
  10. RENVELA [Concomitant]
  11. OMEPRAZOLE [Concomitant]

REACTIONS (4)
  - Neoplasm [None]
  - Lethargy [None]
  - Confusional state [None]
  - Malignant neoplasm progression [None]
